FAERS Safety Report 25527910 (Version 1)
Quarter: 2025Q3

REPORT INFORMATION
  Report Type: Spontaneous
  Country: EU (occurrence: EU)
  Receive Date: 20250708
  Receipt Date: 20250708
  Transmission Date: 20251021
  Serious: Yes (Other)
  Sender: AUROBINDO
  Company Number: EU-AUROBINDO-AUR-APL-2025-033483

PATIENT
  Age: 49 Year
  Sex: Female

DRUGS (14)
  1. CARBOPLATIN [Suspect]
     Active Substance: CARBOPLATIN
     Indication: Ovarian cancer metastatic
     Route: 065
     Dates: start: 2011
  2. CARBOPLATIN [Suspect]
     Active Substance: CARBOPLATIN
     Route: 065
     Dates: start: 2014
  3. PACLITAXEL [Suspect]
     Active Substance: PACLITAXEL
     Indication: Ovarian cancer metastatic
     Route: 065
     Dates: start: 2011
  4. PACLITAXEL [Suspect]
     Active Substance: PACLITAXEL
     Route: 065
     Dates: start: 2014
  5. DOXORUBICIN [Suspect]
     Active Substance: DOXORUBICIN
     Indication: Synovial sarcoma
     Route: 065
  6. GEMCITABINE [Suspect]
     Active Substance: GEMCITABINE
     Indication: Synovial sarcoma
     Route: 065
  7. MITOMYCIN [Suspect]
     Active Substance: MITOMYCIN
     Indication: Ovarian cancer
     Route: 065
     Dates: start: 2014
  8. TAMOXIFEN [Suspect]
     Active Substance: TAMOXIFEN
     Indication: Ovarian cancer metastatic
     Route: 065
     Dates: start: 201508, end: 201508
  9. PEMBROLIZUMAB [Suspect]
     Active Substance: PEMBROLIZUMAB
     Indication: Ovarian cancer metastatic
     Route: 065
     Dates: start: 201508, end: 201508
  10. PEMBROLIZUMAB [Suspect]
     Active Substance: PEMBROLIZUMAB
     Indication: Synovial sarcoma
     Route: 065
     Dates: start: 2019
  11. DEXAMETHASONE [Suspect]
     Active Substance: DEXAMETHASONE
     Indication: Synovial sarcoma
     Route: 065
     Dates: start: 2019
  12. IFOSFAMIDE [Suspect]
     Active Substance: IFOSFAMIDE
     Indication: Synovial sarcoma
     Route: 065
     Dates: start: 2019
  13. NAVITOCLAX [Suspect]
     Active Substance: NAVITOCLAX
     Indication: Synovial sarcoma
     Route: 065
     Dates: start: 2019
  14. BEVACIZUMAB [Concomitant]
     Active Substance: BEVACIZUMAB
     Indication: Ovarian cancer metastatic
     Route: 065

REACTIONS (1)
  - Drug ineffective [Unknown]
